FAERS Safety Report 21911022 (Version 1)
Quarter: 2023Q1

REPORT INFORMATION
  Report Type: Report from Study
  Country: US (occurrence: US)
  Receive Date: 20230125
  Receipt Date: 20230125
  Transmission Date: 20230417
  Serious: Yes (Other)
  Sender: FDA-Public Use
  Company Number: US-TAKEDA-ALL1-2013-05410

PATIENT
  Sex: Female

DRUGS (2)
  1. VELAGLUCERASE ALFA [Suspect]
     Active Substance: VELAGLUCERASE ALFA
     Indication: Gaucher^s disease
     Dosage: 3600 INTERNATIONAL UNIT
     Route: 041
     Dates: start: 20120517
  2. VELAGLUCERASE ALFA [Suspect]
     Active Substance: VELAGLUCERASE ALFA
     Dosage: UNK
     Route: 065
     Dates: start: 20120601

REACTIONS (2)
  - Exposure during pregnancy [Not Recovered/Not Resolved]
  - Exposure to SARS-CoV-2 [Recovering/Resolving]

NARRATIVE: CASE EVENT DATE: 20130101
